FAERS Safety Report 11404073 (Version 1)
Quarter: 2015Q3

REPORT INFORMATION
  Report Type: Spontaneous
  Country: BR (occurrence: BR)
  Receive Date: 20150821
  Receipt Date: 20150821
  Transmission Date: 20151125
  Serious: Yes (Hospitalization, Other)
  Sender: FDA-Public Use
  Company Number: BR-PFIZER INC-2015273730

PATIENT
  Age: 85 Year
  Sex: Male
  Weight: 72 kg

DRUGS (4)
  1. NORVASC [Concomitant]
     Active Substance: AMLODIPINE BESYLATE
     Indication: DEPRESSION
     Dosage: 1 TABLET PER DAY
     Dates: start: 1995
  2. LIPITOR [Suspect]
     Active Substance: ATORVASTATIN CALCIUM
     Dosage: UNK
  3. EBIX [Concomitant]
     Active Substance: MEMANTINE HYDROCHLORIDE
     Indication: DEMENTIA ALZHEIMER^S TYPE
     Dosage: 1 TABLET PER DAY
     Dates: start: 2012
  4. TRADJENTA [Concomitant]
     Active Substance: LINAGLIPTIN
     Indication: DIABETES MELLITUS
     Dosage: 1 TABLET PER DAY
     Dates: start: 2014

REACTIONS (4)
  - Coronary artery insufficiency [Unknown]
  - Blood cholesterol abnormal [Unknown]
  - Asthenia [Not Recovered/Not Resolved]
  - Haemorrhagic necrotic pancreatitis [Unknown]
